FAERS Safety Report 25463223 (Version 3)
Quarter: 2025Q3

REPORT INFORMATION
  Report Type: Report from Study
  Country: US (occurrence: US)
  Receive Date: 20250620
  Receipt Date: 20250715
  Transmission Date: 20251021
  Serious: Yes (Hospitalization)
  Sender: PFIZER
  Company Number: US-PFIZER INC-PV202500071573

PATIENT
  Age: 71 Year
  Sex: Male
  Weight: 76.2 kg

DRUGS (7)
  1. DOCETAXEL [Suspect]
     Active Substance: DOCETAXEL
     Indication: Hormone-refractory prostate cancer
     Route: 042
     Dates: start: 20241023, end: 20241023
  2. DOCETAXEL [Suspect]
     Active Substance: DOCETAXEL
     Route: 042
     Dates: start: 20250529, end: 20250529
  3. LORIGERLIMAB [Suspect]
     Active Substance: LORIGERLIMAB
     Indication: Hormone-refractory prostate cancer
     Route: 042
     Dates: start: 20241023, end: 20241023
  4. LORIGERLIMAB [Suspect]
     Active Substance: LORIGERLIMAB
     Route: 042
     Dates: start: 20250529, end: 20250529
  5. PREDNISONE [Suspect]
     Active Substance: PREDNISONE
     Indication: Hormone-refractory prostate cancer
     Dosage: 5 MG, 2X/DAY (C1D1)
     Route: 048
     Dates: start: 20241024
  6. DOXYCYCLINE [Concomitant]
     Active Substance: DOXYCYCLINE
     Dosage: 100 MG, 2X/DAY
     Route: 048
     Dates: start: 20250515
  7. LEVOFLOXACIN [Concomitant]
     Active Substance: LEVOFLOXACIN
     Indication: Osteonecrosis of jaw
     Dosage: 500 MG, 1X/DAY
     Route: 048
     Dates: start: 20250515

REACTIONS (1)
  - Glucose tolerance impaired [Recovered/Resolved with Sequelae]

NARRATIVE: CASE EVENT DATE: 20250606
